FAERS Safety Report 8073111-X (Version None)
Quarter: 2012Q1

REPORT INFORMATION
  Report Type: 
  Country: None (occurrence: None)
  Receive Date: 20120126
  Receipt Date: 20120115
  Transmission Date: 20120608
  Serious: Yes (Hospitalization)
  Sender: FDA-Public Use
  Company Number: IL-NOVOPROD-343072

PATIENT
  Age: 61 Year
  Sex: Female

DRUGS (6)
  1. ROSUVASTATIN [Concomitant]
     Dosage: 10 MG, QD
  2. ATENOLOL [Concomitant]
     Dosage: 50 MG, QD
  3. LANSOPRAZOLE [Concomitant]
  4. VICTOZA [Suspect]
     Indication: PRODUCT USED FOR UNKNOWN INDICATION
     Dosage: 1.2 MG, QD
     Route: 065
     Dates: start: 20100801
  5. ENALAPRIL [Concomitant]
     Dosage: 10 MG, QD
  6. METFORMIN HCL [Concomitant]
     Dosage: 850 MG, QD

REACTIONS (2)
  - PANCREATITIS [None]
  - NAUSEA [None]
